FAERS Safety Report 7306759-8 (Version None)
Quarter: 2011Q1

REPORT INFORMATION
  Report Type: 
  Country: None (occurrence: None)
  Receive Date: 20110222
  Receipt Date: 20110211
  Transmission Date: 20110831
  Serious: Yes (Other)
  Sender: FDA-Public Use
  Company Number: DE-BAYER-2011-014108

PATIENT

DRUGS (1)
  1. CIPROBAY [Suspect]
     Indication: OSTEOMYELITIS
     Dosage: 500 MG, BID

REACTIONS (3)
  - IMMUNOGLOBULINS DECREASED [None]
  - MUCOSAL INFECTION [None]
  - INFECTION SUSCEPTIBILITY INCREASED [None]
